FAERS Safety Report 16907762 (Version 3)
Quarter: 2020Q2

REPORT INFORMATION
  Report Type: Spontaneous
  Country: US (occurrence: US)
  Receive Date: 20191011
  Receipt Date: 20200518
  Transmission Date: 20200713
  Serious: Yes (Other)
  Sender: FDA-Public Use
  Company Number: US-SUN PHARMACEUTICAL INDUSTRIES LTD-2019R1-223213

PATIENT
  Age: 78 Year
  Sex: Female

DRUGS (1)
  1. RANOLAZINE. [Suspect]
     Active Substance: RANOLAZINE
     Indication: ANGINA PECTORIS
     Dosage: 2 TABLETS, QD
     Route: 048
     Dates: start: 20190908, end: 20190913

REACTIONS (14)
  - Tachycardia [Unknown]
  - Syncope [Unknown]
  - Malaise [Unknown]
  - Headache [Unknown]
  - Cold sweat [Unknown]
  - Feeling abnormal [Unknown]
  - Abdominal discomfort [Unknown]
  - Agitation [Unknown]
  - Chills [Unknown]
  - Cerebrovascular accident [Unknown]
  - Nausea [Unknown]
  - Palpitations [Unknown]
  - Dry mouth [Unknown]
  - Dizziness [Unknown]

NARRATIVE: CASE EVENT DATE: 201909
